FAERS Safety Report 7331638-X (Version None)
Quarter: 2011Q1

REPORT INFORMATION
  Report Type: 
  Country: None (occurrence: None)
  Receive Date: 20110228
  Receipt Date: 20110228
  Transmission Date: 20110831
  Serious: No
  Sender: FDA-Public Use
  Company Number: None

PATIENT
  Age: 44 Year
  Sex: Male
  Weight: 79.3795 kg

DRUGS (1)
  1. FLUTICASONE PROPIONATE [Suspect]
     Indication: MULTIPLE ALLERGIES
     Dosage: ONE SPRAY IN EA NOSTRIL DAILY AS NEEDED NASAL
     Route: 045
     Dates: start: 20110128, end: 20110218

REACTIONS (6)
  - ANOSMIA [None]
  - ECONOMIC PROBLEM [None]
  - PRODUCT ODOUR ABNORMAL [None]
  - DRUG INEFFECTIVE [None]
  - SINUSITIS [None]
  - IMPAIRED WORK ABILITY [None]
